FAERS Safety Report 8105418-1 (Version None)
Quarter: 2012Q1

REPORT INFORMATION
  Report Type: 
  Country: None (occurrence: None)
  Receive Date: 20120201
  Receipt Date: 20120119
  Transmission Date: 20120608
  Serious: Yes (Other)
  Sender: FDA-Public Use
  Company Number: US-ELI_LILLY_AND_COMPANY-US201201006355

PATIENT
  Sex: Female

DRUGS (7)
  1. VICODIN [Concomitant]
  2. ELAVIL [Concomitant]
  3. NEXIUM [Concomitant]
  4. FORTEO [Suspect]
     Indication: OSTEOPOROSIS
     Dosage: 20 UG, QD
     Dates: start: 20110601
  5. ATENOLOL [Concomitant]
  6. FUROSEMIDE [Concomitant]
     Dosage: 20 MG, UNK
  7. HEPARIN [Concomitant]

REACTIONS (2)
  - FIBULA FRACTURE [None]
  - TIBIA FRACTURE [None]
